FAERS Safety Report 10309028 (Version 1)
Quarter: 2014Q3

REPORT INFORMATION
  Report Type: Spontaneous
  Country: US (occurrence: US)
  Receive Date: 20140716
  Receipt Date: 20140716
  Transmission Date: 20150326
  Serious: Yes (Other)
  Sender: FDA-Public Use
  Company Number: US-ELI_LILLY_AND_COMPANY-US201407002697

PATIENT
  Age: 65 Year
  Sex: Female

DRUGS (12)
  1. TREANDA [Suspect]
     Active Substance: BENDAMUSTINE HYDROCHLORIDE
     Indication: RENAL CELL CARCINOMA
  2. RITUXIMAB [Suspect]
     Active Substance: RITUXIMAB
     Indication: B-CELL SMALL LYMPHOCYTIC LYMPHOMA
     Dosage: UNK, UNKNOWN
     Route: 065
  3. RITUXIMAB [Suspect]
     Active Substance: RITUXIMAB
     Indication: RENAL CELL CARCINOMA
  4. HYDROCHLOROTHIAZIDE. [Concomitant]
     Active Substance: HYDROCHLOROTHIAZIDE
     Dosage: 25 MG, QD
     Route: 065
  5. WARFIN [Concomitant]
     Active Substance: WARFARIN
     Dosage: 1 MG, QD
     Route: 065
  6. MULTIVITAMIN                       /00097801/ [Concomitant]
     Active Substance: VITAMINS
     Dosage: UNK, UNKNOWN
     Route: 065
  7. HUMULIN N [Suspect]
     Active Substance: INSULIN HUMAN
     Indication: DIABETES MELLITUS
     Dosage: 70 IU, BID
     Route: 065
  8. HUMULIN N [Suspect]
     Active Substance: INSULIN HUMAN
     Dosage: 85 IU, BID
     Route: 065
  9. FUROSEMIDE. [Concomitant]
     Active Substance: FUROSEMIDE
     Dosage: UNK, BID
     Route: 065
  10. DILTIAZEM [Concomitant]
     Active Substance: DILTIAZEM
     Dosage: 300 MG, QD
     Route: 065
  11. TREANDA [Suspect]
     Active Substance: BENDAMUSTINE HYDROCHLORIDE
     Indication: B-CELL SMALL LYMPHOCYTIC LYMPHOMA
     Dosage: UNK, UNKNOWN
     Route: 065
  12. LOVASTATIN. [Concomitant]
     Active Substance: LOVASTATIN
     Dosage: 20 MG, QD
     Route: 065

REACTIONS (5)
  - Memory impairment [Unknown]
  - B-cell small lymphocytic lymphoma [Unknown]
  - Renal cell carcinoma [Recovered/Resolved]
  - Thinking abnormal [Unknown]
  - Joint injury [Unknown]

NARRATIVE: CASE EVENT DATE: 201209
